FAERS Safety Report 9958910 (Version 1)
Quarter: 2014Q1

REPORT INFORMATION
  Report Type: Spontaneous
  Country: US (occurrence: None)
  Receive Date: 20140228
  Receipt Date: 20140228
  Transmission Date: 20141002
  Serious: Yes (Disabling)
  Sender: FDA-Public Use
  Company Number: None

PATIENT
  Age: 61 Year
  Sex: Female
  Weight: 65.32 kg

DRUGS (2)
  1. LEVOTHYROXINE [Suspect]
     Indication: SECONDARY HYPOTHYROIDISM
     Route: 048
     Dates: start: 20120827, end: 20131211
  2. FLUOCINOLONE (SYNALAR) [Concomitant]

REACTIONS (2)
  - Product substitution issue [None]
  - Blood thyroid stimulating hormone abnormal [None]
